FAERS Safety Report 16304942 (Version 3)
Quarter: 2019Q3

REPORT INFORMATION
  Report Type: Spontaneous
  Country: US (occurrence: US)
  Receive Date: 20190513
  Receipt Date: 20190909
  Transmission Date: 20191004
  Serious: Yes (Death)
  Sender: FDA-Public Use
  Company Number: US-PFIZER INC-2018313419

PATIENT
  Age: 12 Year
  Sex: Female

DRUGS (4)
  1. ETOPOSIDE. [Concomitant]
     Active Substance: ETOPOSIDE
     Indication: RHABDOMYOSARCOMA
     Dosage: 50 MG/M2, CYCLIC (DAY 1-14 Q 21 DAYS)
     Route: 048
     Dates: start: 20180709, end: 20181110
  2. IBRANCE [Suspect]
     Active Substance: PALBOCICLIB
     Indication: RHABDOMYOSARCOMA
     Dosage: 100 MG, CYCLIC (13 DAYS EVERY 21-DAY CYCLE)
     Route: 048
  3. IBRANCE [Suspect]
     Active Substance: PALBOCICLIB
     Dosage: 100 MG, DAILY (PER G-TUBE)
     Dates: start: 20180709, end: 20181110
  4. VINORELBINE [Concomitant]
     Active Substance: VINORELBINE TARTRATE
     Indication: RHABDOMYOSARCOMA
     Dosage: 25 MG/M2, CYCLIC (DAY 1-28 Q 21 DAYS)
     Route: 042
     Dates: start: 20180709, end: 20181110

REACTIONS (4)
  - Incorrect route of product administration [Unknown]
  - Neoplasm progression [Fatal]
  - Off label use [Unknown]
  - Product use in unapproved indication [Unknown]
